FAERS Safety Report 10792300 (Version 1)
Quarter: 2015Q1

REPORT INFORMATION
  Report Type: Spontaneous
  Country: FR (occurrence: FR)
  Receive Date: 20150213
  Receipt Date: 20150213
  Transmission Date: 20150721
  Serious: Yes (Hospitalization)
  Sender: FDA-Public Use
  Company Number: FR-AMGEN-FRASP2015011324

PATIENT
  Age: 79 Year
  Sex: Female

DRUGS (3)
  1. PROLIA [Suspect]
     Active Substance: DENOSUMAB
     Indication: PRODUCT USED FOR UNKNOWN INDICATION
     Dosage: UNK UNK, Q6MO
     Route: 058
     Dates: start: 20150103
  2. DAFALGAN [Suspect]
     Active Substance: ACETAMINOPHEN
     Indication: RESPIRATORY DISORDER
     Dosage: UNK
     Route: 065
     Dates: start: 201412
  3. IBUPROFEN. [Suspect]
     Active Substance: IBUPROFEN
     Indication: RESPIRATORY DISORDER
     Dosage: UNK
     Route: 065
     Dates: start: 201412

REACTIONS (1)
  - Thrombocytopenia [Unknown]

NARRATIVE: CASE EVENT DATE: 20150108
